FAERS Safety Report 6454162-5 (Version None)
Quarter: 2009Q4

REPORT INFORMATION
  Report Type: 
  Country: None (occurrence: None)
  Receive Date: 20091124
  Receipt Date: 20091117
  Transmission Date: 20100525
  Serious: Yes (Disabling)
  Sender: FDA-Public Use
  Company Number: GXKR2007GB03849

PATIENT
  Age: 54 Year
  Sex: Female

DRUGS (6)
  1. MIRTAZAPINE (NGX) [Suspect]
     Indication: DEPRESSION
     Dosage: 45 MG, QD
     Route: 048
     Dates: start: 20061201, end: 20061201
  2. MIRTAZAPINE (NGX) [Suspect]
     Dosage: 90 MG, QD
     Route: 048
     Dates: end: 20070308
  3. MIRTAZAPINE (NGX) [Suspect]
     Dosage: 60 MG, QD
     Route: 048
  4. LITHIUM [Concomitant]
     Indication: DEPRESSION
     Dosage: 800 MG, QD
     Route: 048
     Dates: start: 20050101
  5. QUETIAPINE [Concomitant]
     Indication: AGITATION
     Dosage: 100 MG, TID
     Route: 048
     Dates: start: 20050101
  6. TETRABENAZINE [Concomitant]
     Indication: TARDIVE DYSKINESIA
     Dosage: 25 MG, BID
     Route: 065
     Dates: start: 20060101

REACTIONS (2)
  - DIABETES MELLITUS INADEQUATE CONTROL [None]
  - WEIGHT INCREASED [None]
